FAERS Safety Report 20698242 (Version 2)
Quarter: 2022Q2

REPORT INFORMATION
  Report Type: Report from Study
  Country: US (occurrence: US)
  Receive Date: 20220412
  Receipt Date: 20220415
  Transmission Date: 20220721
  Serious: Yes (Other)
  Sender: FDA-Public Use
  Company Number: US-BRISTOL-MYERS SQUIBB COMPANY-2022-016184

PATIENT
  Age: 71 Year
  Sex: Male
  Weight: 93.44 kg

DRUGS (2)
  1. ELIQUIS [Suspect]
     Active Substance: APIXABAN
     Indication: Intracardiac thrombus
     Dosage: DOSE : 5MG;     FREQ : TWICE A DAY
     Route: 048
     Dates: start: 2021, end: 202111
  2. METOPROLOL [Concomitant]
     Active Substance: METOPROLOL
     Indication: Product used for unknown indication
     Dosage: SUCCINATE EXTENDED RELEASE
     Route: 065

REACTIONS (4)
  - Cerebrovascular accident [Unknown]
  - Amnesia [Unknown]
  - Vision blurred [Unknown]
  - Intentional product use issue [Unknown]
